FAERS Safety Report 4430562-X (Version None)
Quarter: 2004Q3

REPORT INFORMATION
  Report Type: 
  Country: None (occurrence: None)
  Receive Date: 20040818
  Receipt Date: 20040804
  Transmission Date: 20050211
  Serious: Yes (Other)
  Sender: FDA-Public Use
  Company Number: SGB1-2004-00280

PATIENT
  Age: 67 Year
  Sex: Female

DRUGS (6)
  1. AGRYLIN [Suspect]
     Indication: PLATELET COUNT DECREASED
     Dosage: 500 UG, 2X/DAY:BID, ORAL
     Route: 048
     Dates: start: 20040628
  2. WARFARIN (WARFARIN) [Suspect]
     Indication: CEREBROVASCULAR ACCIDENT
     Dosage: SEE IMAGE
  3. FUROSEMIDE [Concomitant]
  4. HYDROXYUREA [Concomitant]
  5. ORAMORPH SR [Concomitant]
  6. SPIRONOLACTONE [Concomitant]

REACTIONS (2)
  - DRUG INTERACTION [None]
  - INTERNATIONAL NORMALISED RATIO DECREASED [None]
